FAERS Safety Report 18792878 (Version 1)
Quarter: 2021Q1

REPORT INFORMATION
  Report Type: Spontaneous
  Country: CN (occurrence: CN)
  Receive Date: 20210127
  Receipt Date: 20210127
  Transmission Date: 20210419
  Serious: Yes (Other)
  Sender: FDA-Public Use
  Company Number: ALC2021CN000697

PATIENT
  Age: 50 Year
  Sex: Female

DRUGS (1)
  1. ALCAINE [Suspect]
     Active Substance: PROPARACAINE HYDROCHLORIDE
     Indication: APPLICATION SITE ANAESTHESIA
     Dosage: 1 DRP, OT
     Route: 047
     Dates: start: 20210108, end: 20210108

REACTIONS (1)
  - Administration site irritation [Recovered/Resolved]

NARRATIVE: CASE EVENT DATE: 20210108
